FAERS Safety Report 6631038-1 (Version None)
Quarter: 2010Q1

REPORT INFORMATION
  Report Type: 
  Country: None (occurrence: None)
  Receive Date: 20100309
  Receipt Date: 20100223
  Transmission Date: 20100710
  Serious: Yes (Other)
  Sender: FDA-Public Use
  Company Number: 2010US000619

PATIENT
  Age: 63 Year
  Sex: Male

DRUGS (12)
  1. VIBATIV [Suspect]
     Indication: CELLULITIS
     Dosage: 5 MG/KG, UID/QD, IV NOS
     Route: 042
     Dates: start: 20100223, end: 20100223
  2. VIBATIV [Suspect]
     Indication: OSTEOMYELITIS
     Dosage: 5 MG/KG, UID/QD, IV NOS
     Route: 042
     Dates: start: 20100223, end: 20100223
  3. COUMADIN [Concomitant]
  4. ZESTRIL [Concomitant]
  5. NEURONTIN [Concomitant]
  6. LASIX [Concomitant]
  7. CRESTOR [Concomitant]
  8. COREG [Concomitant]
  9. XANAX [Concomitant]
  10. PROTONIX [Concomitant]
  11. PERCOCET [Concomitant]
  12. ZYVOX [Concomitant]

REACTIONS (2)
  - DYSPNOEA [None]
  - PRURITUS GENERALISED [None]
